FAERS Safety Report 24956128 (Version 3)
Quarter: 2025Q2

REPORT INFORMATION
  Report Type: Spontaneous
  Country: AR (occurrence: AR)
  Receive Date: 20250211
  Receipt Date: 20250422
  Transmission Date: 20250717
  Serious: No
  Sender: PFIZER
  Company Number: AR-PFIZER INC-202500028216

PATIENT
  Age: 3 Year
  Sex: Male

DRUGS (2)
  1. GENOTROPIN [Suspect]
     Active Substance: SOMATROPIN
     Indication: Prader-Willi syndrome
     Dates: start: 20220914
  2. GENOTROPIN [Suspect]
     Active Substance: SOMATROPIN
     Dates: start: 20220914

REACTIONS (3)
  - Device power source issue [Unknown]
  - Device information output issue [Unknown]
  - Device issue [Unknown]

NARRATIVE: CASE EVENT DATE: 20241201
